FAERS Safety Report 16400049 (Version 1)
Quarter: 2019Q2

REPORT INFORMATION
  Report Type: Spontaneous
  Country: US (occurrence: US)
  Receive Date: 20190606
  Receipt Date: 20190606
  Transmission Date: 20190711
  Serious: No
  Sender: FDA-Public Use
  Company Number: US-ALLERGAN-1855188US

PATIENT
  Sex: Female

DRUGS (1)
  1. KYBELLA [Suspect]
     Active Substance: DEOXYCHOLIC ACID
     Indication: LIPOMA
     Dosage: UNK, SINGLE
     Route: 058
     Dates: start: 20181024, end: 20181024

REACTIONS (3)
  - Off label use [Unknown]
  - Autoimmune disorder [Unknown]
  - Arthralgia [Unknown]
